FAERS Safety Report 14322844 (Version 2)
Quarter: 2018Q1

REPORT INFORMATION
  Report Type: Report from Study
  Country: JP (occurrence: JP)
  Receive Date: 20171226
  Receipt Date: 20180301
  Transmission Date: 20180509
  Serious: Yes (Hospitalization, Other)
  Sender: FDA-Public Use
  Company Number: JP-ROCHE-2041877

PATIENT
  Age: 36 Year
  Sex: Male

DRUGS (46)
  1. RITUXIMAB. [Suspect]
     Active Substance: RITUXIMAB
     Dosage: 10 MG/ML
     Route: 041
     Dates: start: 20170524, end: 20170524
  2. TACROLIMUS HYDRATE [Suspect]
     Active Substance: TACROLIMUS
     Route: 048
     Dates: start: 20170629
  3. LOXOPROFEN [Concomitant]
     Active Substance: LOXOPROFEN
     Route: 048
     Dates: start: 20170524, end: 20170524
  4. CALONAL [Concomitant]
     Active Substance: ACETAMINOPHEN
     Route: 048
     Dates: start: 20170529, end: 20170603
  5. BASILIXIMAB [Concomitant]
     Active Substance: BASILIXIMAB
     Indication: ABO INCOMPATIBILITY
     Route: 042
     Dates: start: 20170525, end: 20170525
  6. NESP [Concomitant]
     Active Substance: DARBEPOETIN ALFA
     Indication: ANAEMIA
     Route: 058
     Dates: start: 20170427, end: 20170427
  7. SODIUM FERROUS CITRATE [Concomitant]
     Active Substance: SODIUM FERROUS CITRATE
     Indication: ANAEMIA
     Route: 048
     Dates: start: 20170524
  8. TACROLIMUS HYDRATE [Suspect]
     Active Substance: TACROLIMUS
     Indication: ABO INCOMPATIBILITY
     Route: 048
     Dates: start: 20170522, end: 20170525
  9. TACROLIMUS HYDRATE [Suspect]
     Active Substance: TACROLIMUS
     Route: 048
     Dates: start: 20170526, end: 20170527
  10. HYDROCORTISONE SODIUM SUCCINATE [Suspect]
     Active Substance: HYDROCORTISONE SODIUM SUCCINATE
     Indication: ABO INCOMPATIBILITY
     Route: 042
     Dates: start: 20170523, end: 20170524
  11. METHYLPREDNISOLONE SODIUM SUCCINATE. [Suspect]
     Active Substance: METHYLPREDNISOLONE SODIUM SUCCINATE
     Route: 042
     Dates: start: 20170629, end: 20170701
  12. POLARAMINE [Concomitant]
     Active Substance: DEXCHLORPHENIRAMINE MALEATE
     Route: 042
     Dates: start: 20170524, end: 20170524
  13. FOSRENOL [Concomitant]
     Active Substance: LANTHANUM CARBONATE
     Indication: GLOMERULONEPHRITIS CHRONIC
     Route: 048
     Dates: start: 20170524
  14. MYCOPHENOLATE MOFETIL. [Suspect]
     Active Substance: MYCOPHENOLATE MOFETIL
     Indication: ABO INCOMPATIBILITY
     Route: 048
     Dates: start: 20170511, end: 20170521
  15. MYCOPHENOLATE MOFETIL. [Suspect]
     Active Substance: MYCOPHENOLATE MOFETIL
     Route: 048
     Dates: start: 20170708, end: 20170921
  16. MYCOPHENOLATE MOFETIL. [Suspect]
     Active Substance: MYCOPHENOLATE MOFETIL
     Route: 048
     Dates: start: 20171117
  17. METHYLPREDNISOLONE. [Suspect]
     Active Substance: METHYLPREDNISOLONE
     Route: 048
     Dates: start: 20170530, end: 20170531
  18. METHYLPREDNISOLONE. [Suspect]
     Active Substance: METHYLPREDNISOLONE
     Route: 048
     Dates: start: 20170608, end: 20170614
  19. METHYLPREDNISOLONE. [Suspect]
     Active Substance: METHYLPREDNISOLONE
     Route: 048
     Dates: start: 20170615, end: 20170818
  20. METHYLPREDNISOLONE. [Suspect]
     Active Substance: METHYLPREDNISOLONE
     Route: 048
     Dates: start: 20170819, end: 20170831
  21. TACROLIMUS HYDRATE [Suspect]
     Active Substance: TACROLIMUS
     Route: 048
     Dates: start: 20170529, end: 20170621
  22. METHYLPREDNISOLONE. [Suspect]
     Active Substance: METHYLPREDNISOLONE
     Indication: ABO INCOMPATIBILITY
     Route: 048
     Dates: start: 20170511, end: 20170524
  23. METHYLPREDNISOLONE SODIUM SUCCINATE. [Suspect]
     Active Substance: METHYLPREDNISOLONE SODIUM SUCCINATE
     Indication: ABO INCOMPATIBILITY
     Route: 042
     Dates: start: 20170525, end: 20170525
  24. CALONAL [Concomitant]
     Active Substance: ACETAMINOPHEN
     Indication: PREMEDICATION
     Route: 048
     Dates: start: 20170517, end: 20170517
  25. MYCOPHENOLATE MOFETIL. [Suspect]
     Active Substance: MYCOPHENOLATE MOFETIL
     Route: 048
     Dates: start: 20170922, end: 20171116
  26. ATOVAQUONE. [Suspect]
     Active Substance: ATOVAQUONE
     Indication: ABO INCOMPATIBILITY
     Route: 048
     Dates: start: 20170805, end: 20171012
  27. POLARAMINE [Concomitant]
     Active Substance: DEXCHLORPHENIRAMINE MALEATE
     Indication: PREMEDICATION
     Route: 042
     Dates: start: 20170517, end: 20170517
  28. FAMOTIDINE. [Concomitant]
     Active Substance: FAMOTIDINE
     Route: 042
     Dates: start: 20170524, end: 20170524
  29. CALONAL [Concomitant]
     Active Substance: ACETAMINOPHEN
     Route: 048
     Dates: start: 20170524, end: 20170524
  30. BASILIXIMAB [Concomitant]
     Active Substance: BASILIXIMAB
     Route: 042
     Dates: start: 20170529, end: 20170529
  31. MIRCERA [Concomitant]
     Active Substance: METHOXY POLYETHYLENE GLYCOL-EPOETIN BETA
     Route: 058
     Dates: start: 20171026, end: 20171026
  32. SULFAMETHOXAZOLE/TRIMETHOPRIM [Concomitant]
     Active Substance: SULFAMETHOXAZOLE\TRIMETHOPRIM
     Indication: INFECTION PROPHYLAXIS
     Route: 048
     Dates: start: 20170605, end: 20170630
  33. RITUXIMAB. [Suspect]
     Active Substance: RITUXIMAB
     Indication: ABO INCOMPATIBILITY
     Dosage: 10 MG/ML
     Route: 041
     Dates: start: 20170517, end: 20170517
  34. PRECIPITATED CALCIUM CARBONATE [Concomitant]
     Active Substance: CALCIUM CARBONATE
     Indication: GLOMERULONEPHRITIS CHRONIC
     Route: 048
     Dates: start: 20170524
  35. METHYLPREDNISOLONE. [Suspect]
     Active Substance: METHYLPREDNISOLONE
     Route: 048
     Dates: start: 20170601, end: 20170607
  36. METHYLPREDNISOLONE. [Suspect]
     Active Substance: METHYLPREDNISOLONE
     Route: 048
     Dates: start: 20170901
  37. FAMOTIDINE. [Suspect]
     Active Substance: FAMOTIDINE
     Indication: ABO INCOMPATIBILITY
     Route: 048
     Dates: start: 20170527
  38. FAMOTIDINE. [Concomitant]
     Active Substance: FAMOTIDINE
     Indication: PREMEDICATION
     Route: 042
     Dates: start: 20170517, end: 20170517
  39. LOXOPROFEN [Concomitant]
     Active Substance: LOXOPROFEN
     Indication: PREMEDICATION
     Route: 048
     Dates: start: 20170517, end: 20170517
  40. MIRCERA [Concomitant]
     Active Substance: METHOXY POLYETHYLENE GLYCOL-EPOETIN BETA
     Indication: ANAEMIA
     Route: 058
     Dates: start: 20170707, end: 20170707
  41. VALIXA [Concomitant]
     Active Substance: VALGANCICLOVIR
     Indication: INFECTION PROPHYLAXIS
     Route: 048
     Dates: start: 20170825, end: 20170920
  42. FEBURIC [Concomitant]
     Active Substance: FEBUXOSTAT
     Indication: HYPERURICAEMIA
     Route: 048
     Dates: start: 20170524
  43. LOSARTAN POTASSIUM. [Concomitant]
     Active Substance: LOSARTAN POTASSIUM
     Indication: HYPERTENSION
     Route: 048
     Dates: start: 20170517, end: 20170524
  44. MYCOPHENOLATE MOFETIL. [Suspect]
     Active Substance: MYCOPHENOLATE MOFETIL
     Route: 048
     Dates: start: 20170522, end: 20170707
  45. METHYLPREDNISOLONE SODIUM SUCCINATE. [Suspect]
     Active Substance: METHYLPREDNISOLONE SODIUM SUCCINATE
     Route: 042
     Dates: start: 20170526, end: 20170529
  46. CALCITRIOL. [Concomitant]
     Active Substance: CALCITRIOL
     Indication: GLOMERULONEPHRITIS CHRONIC
     Route: 048
     Dates: start: 20170513, end: 20170524

REACTIONS (4)
  - Neutropenia [Recovered/Resolved]
  - Cytomegalovirus test positive [Recovered/Resolved]
  - Graft thrombosis [Not Recovered/Not Resolved]
  - Febrile neutropenia [Recovering/Resolving]

NARRATIVE: CASE EVENT DATE: 20170703
